FAERS Safety Report 21483164 (Version 3)
Quarter: 2022Q4

REPORT INFORMATION
  Report Type: Report from Study
  Country: US (occurrence: US)
  Receive Date: 20221020
  Receipt Date: 20221104
  Transmission Date: 20230113
  Serious: Yes (Other)
  Sender: FDA-Public Use
  Company Number: US-JNJFOC-20221027167

PATIENT
  Age: 40 Year
  Sex: Female
  Weight: 59.020 kg

DRUGS (10)
  1. SPRAVATO [Suspect]
     Active Substance: ESKETAMINE
     Indication: Depression
     Dosage: 56 MG, 1 TOTAL DOSE
     Dates: start: 20220909, end: 20220909
  2. SPRAVATO [Suspect]
     Active Substance: ESKETAMINE
     Dosage: 84 MG, 4 TOTAL DOSES
     Dates: start: 20220911, end: 20220930
  3. DEPLIN [LEVOMEFOLIC ACID] [Concomitant]
     Indication: Depression
     Route: 065
     Dates: start: 20220228
  4. METOPROLOL [Concomitant]
     Active Substance: METOPROLOL
     Route: 065
  5. CYMBALTA [Concomitant]
     Active Substance: DULOXETINE HYDROCHLORIDE
     Indication: Depression
     Route: 065
     Dates: start: 20220228
  6. CYMBALTA [Concomitant]
     Active Substance: DULOXETINE HYDROCHLORIDE
     Route: 065
     Dates: start: 20220705
  7. CYMBALTA [Concomitant]
     Active Substance: DULOXETINE HYDROCHLORIDE
     Route: 065
     Dates: start: 20220726
  8. MECLIZINE [Concomitant]
     Active Substance: MECLIZINE HYDROCHLORIDE
     Route: 048
     Dates: start: 20220816, end: 20220911
  9. MECLIZINE [Concomitant]
     Active Substance: MECLIZINE HYDROCHLORIDE
     Route: 065
     Dates: start: 20220914
  10. REMERON [Concomitant]
     Active Substance: MIRTAZAPINE
     Indication: Depression
     Route: 065
     Dates: start: 20220802

REACTIONS (16)
  - Loss of consciousness [Unknown]
  - Hallucination [Unknown]
  - Product colour issue [Unknown]
  - Overdose [Unknown]
  - Cardiac discomfort [Unknown]
  - Memory impairment [Unknown]
  - Dizziness [Recovered/Resolved]
  - Speech disorder [Unknown]
  - Vomiting [Unknown]
  - Fatigue [Recovered/Resolved]
  - Pain [Unknown]
  - Nausea [Unknown]
  - Headache [Unknown]
  - Depression [Unknown]
  - Sedation [Recovered/Resolved]
  - Urinary incontinence [Unknown]

NARRATIVE: CASE EVENT DATE: 20220101
